FAERS Safety Report 4447776-5 (Version None)
Quarter: 2004Q3

REPORT INFORMATION
  Report Type: 
  Country: None (occurrence: None)
  Receive Date: 20040913
  Receipt Date: 20040726
  Transmission Date: 20050211
  Serious: Yes (Death, Hospitalization)
  Sender: FDA-Public Use
  Company Number: 200412821FR

PATIENT
  Age: 60 Year
  Sex: Female

DRUGS (8)
  1. RIFADIN [Suspect]
     Route: 048
     Dates: start: 20040521, end: 20040630
  2. OFLOCET [Suspect]
     Route: 048
     Dates: start: 20040521, end: 20040630
  3. GLUCOPHAGE [Suspect]
     Route: 048
     Dates: end: 20040630
  4. FURADANTIN [Suspect]
     Route: 048
     Dates: start: 20040622, end: 20040630
  5. HYPERIUM [Suspect]
     Route: 048
     Dates: start: 20040601, end: 20040630
  6. NEURONTIN [Suspect]
     Route: 048
     Dates: start: 20040521, end: 20040630
  7. APROVEL [Concomitant]
     Route: 048
     Dates: end: 20040630
  8. FERO-GRAD [Concomitant]
     Dates: end: 20040630

REACTIONS (13)
  - CARDIAC ARREST [None]
  - CARDIAC FAILURE [None]
  - DIABETIC COMPLICATION [None]
  - DIABETIC FOOT [None]
  - EPILEPSY [None]
  - HEPATIC FAILURE [None]
  - HYPERTENSION [None]
  - KETOACIDOSIS [None]
  - LABORATORY TEST ABNORMAL [None]
  - LACTIC ACIDOSIS [None]
  - RESPIRATORY DISTRESS [None]
  - SEPTIC SHOCK [None]
  - URINARY TRACT INFECTION [None]
